FAERS Safety Report 8168106-1 (Version None)
Quarter: 2012Q1

REPORT INFORMATION
  Report Type: 
  Country: None (occurrence: None)
  Receive Date: 20120227
  Receipt Date: 20120220
  Transmission Date: 20120608
  Serious: Yes (Other)
  Sender: FDA-Public Use
  Company Number: PHHY2011CA60424

PATIENT
  Sex: Male

DRUGS (7)
  1. CELEXA [Concomitant]
  2. LEVOTHYROXINE SODIUM [Concomitant]
  3. OXYCONTIN [Concomitant]
  4. ATACAND [Concomitant]
  5. SANDOSTATIN LAR [Suspect]
     Indication: CARCINOID TUMOUR
     Dosage: 20 MG EVERY 04 WEEKS
     Route: 030
     Dates: start: 20110331, end: 20110624
  6. FLORESTOR [Concomitant]
  7. SANDOSTATIN LAR [Suspect]
     Dosage: 10 MG, QMO
     Route: 030
     Dates: start: 20110401

REACTIONS (5)
  - DEPRESSION [None]
  - DIARRHOEA [None]
  - NAUSEA [None]
  - MALAISE [None]
  - MUSCLE SPASMS [None]
